FAERS Safety Report 9001936 (Version 1)
Quarter: 2013Q1

REPORT INFORMATION
  Report Type: Report from Study
  Country: US (occurrence: US)
  Receive Date: 20130107
  Receipt Date: 20130107
  Transmission Date: 20140127
  Serious: Yes (Hospitalization)
  Sender: FDA-Public Use
  Company Number: US-ABBOTT-12P-163-1028636-00

PATIENT
  Sex: Female
  Weight: 79.9 kg

DRUGS (3)
  1. HUMIRA [Suspect]
     Indication: PSORIATIC ARTHROPATHY
     Route: 058
     Dates: start: 20110902
  2. UNKNOWN MEDICATIONS [Concomitant]
     Indication: DIABETES MELLITUS
  3. UNKNOWN MEDICATIONS [Concomitant]
     Indication: CARDIAC DISORDER

REACTIONS (4)
  - Pyrexia [Recovered/Resolved]
  - Influenza [Recovered/Resolved]
  - Cough [Recovering/Resolving]
  - Pain [Recovering/Resolving]
